FAERS Safety Report 8889161 (Version 2)
Quarter: 2012Q4

REPORT INFORMATION
  Report Type: 
  Country: JP (occurrence: JP)
  Receive Date: 20121030
  Receipt Date: 20121030
  Transmission Date: 20130627
  Serious: Yes (Hospitalization)
  Sender: FDA-Public Use
  Company Number: JP-JNJFOC-20120909793

PATIENT
  Age: 43 Year
  Sex: Male

DRUGS (15)
  1. ITRIZOLE [Suspect]
     Indication: FUNGAL RHINITIS
     Dosage: time of drug intake: before lunch, 1%
     Route: 048
  2. ITRIZOLE [Suspect]
     Indication: FUNGAL RHINITIS
     Dosage: after meals
     Route: 048
     Dates: start: 20120925
  3. ITRIZOLE [Suspect]
     Indication: ORAL FUNGAL INFECTION
     Dosage: time of drug intake: before lunch, 1%
     Route: 048
  4. ITRIZOLE [Suspect]
     Indication: ORAL FUNGAL INFECTION
     Dosage: after meals
     Route: 048
     Dates: start: 20120925
  5. MESTINON [Suspect]
     Indication: PRODUCT USED FOR UNKNOWN INDICATION
     Dosage: dose: 80 mg
     Route: 048
  6. MUCODYNE [Concomitant]
     Route: 048
  7. LEFTOSE [Concomitant]
     Route: 048
  8. ALLELOCK [Concomitant]
     Route: 048
  9. FLUNASE [Concomitant]
     Route: 031
  10. AMLODIN OD [Concomitant]
     Route: 048
  11. PREDNISOLONE [Concomitant]
     Route: 048
  12. GASMOTIN [Concomitant]
     Route: 048
  13. BISOLVON [Concomitant]
     Route: 048
  14. GASTER [Concomitant]
     Route: 048
  15. NOVORAPID [Concomitant]
     Dosage: dosage: (6-0-4)
     Route: 065

REACTIONS (2)
  - Hospitalisation [Unknown]
  - Diarrhoea [Recovered/Resolved]
